FAERS Safety Report 4518737-2 (Version None)
Quarter: 2004Q4

REPORT INFORMATION
  Report Type: 
  Country: None (occurrence: None)
  Receive Date: 20041201
  Receipt Date: 20041116
  Transmission Date: 20050328
  Serious: Yes (Hospitalization)
  Sender: FDA-Public Use
  Company Number: US-2004-033950

PATIENT
  Age: 71 Year
  Sex: Female
  Weight: 90.7 kg

DRUGS (14)
  1. BETASERON [Suspect]
     Indication: MULTIPLE SCLEROSIS
     Dosage: 8 MIU, EVERY 2D, SUBCUTANEOUS
     Route: 058
     Dates: start: 20040722
  2. ACTOS /USA/ (PIOGLITAZONE HYDROCHLORIDE) [Concomitant]
  3. ARICEPT [Concomitant]
  4. ACCUPRIL [Concomitant]
  5. INDAPAMIDE [Concomitant]
  6. ZETIA [Concomitant]
  7. LIPITOR [Concomitant]
  8. GLUCOVANCE (METFORMIN HYDROCHLORIDE, GLIBENCLAMIDE) [Concomitant]
  9. CELEBREX [Concomitant]
  10. HYDROCODONE W/APAP (HYDROCODONE) [Concomitant]
  11. AZATHIOPRINE [Concomitant]
  12. VITAMIN C [Concomitant]
  13. VITAMIN E [Concomitant]
  14. VITAMIN B6 [Concomitant]

REACTIONS (7)
  - DIFFICULTY IN WALKING [None]
  - ERYTHEMA [None]
  - HEPATIC ENZYME INCREASED [None]
  - LOCALISED INFECTION [None]
  - MEMORY IMPAIRMENT [None]
  - MULTIPLE SCLEROSIS [None]
  - OEDEMA PERIPHERAL [None]
